FAERS Safety Report 6272530-1 (Version None)
Quarter: 2009Q3

REPORT INFORMATION
  Report Type: 
  Country: None (occurrence: None)
  Receive Date: 20090717
  Receipt Date: 20090708
  Transmission Date: 20100115
  Serious: Yes (Other)
  Sender: FDA-Public Use
  Company Number: PHEH2009US07338

PATIENT
  Age: 67 Year
  Sex: Female

DRUGS (6)
  1. DIOVAN [Suspect]
     Route: 048
  2. PENTASA [Concomitant]
  3. PLAVIX [Concomitant]
  4. SYNTHROID [Concomitant]
  5. ALENDRONATE SODIUM [Concomitant]
  6. PRAVASTATIN [Concomitant]

REACTIONS (2)
  - CEREBROVASCULAR ACCIDENT [None]
  - MYOCARDIAL INFARCTION [None]
